FAERS Safety Report 9312226 (Version 1)
Quarter: 2013Q2

REPORT INFORMATION
  Report Type: Spontaneous
  Country: GB (occurrence: GB)
  Receive Date: 20130528
  Receipt Date: 20130528
  Transmission Date: 20140414
  Serious: Yes (Other)
  Sender: FDA-Public Use
  Company Number: GB-BAUSCH-BL-2013-003135

PATIENT
  Sex: Female
  Weight: 1.24 kg

DRUGS (9)
  1. CYCLOPENTOLATE [Suspect]
     Indication: RETINOPATHY OF PREMATURITY
     Route: 047
     Dates: start: 20130430, end: 20130430
  2. AMOXICILLIN [Concomitant]
  3. CAFFEINE [Concomitant]
  4. CEFOTAXIME [Concomitant]
  5. GENTAMICIN [Concomitant]
  6. POTASSIUM [Concomitant]
     Indication: MINERAL SUPPLEMENTATION
  7. RANITIDINE [Concomitant]
  8. SODIUM [Concomitant]
  9. VANCOMYCIN [Concomitant]

REACTIONS (4)
  - Apnoea neonatal [Not Recovered/Not Resolved]
  - Bradycardia [Not Recovered/Not Resolved]
  - Abdominal distension [Not Recovered/Not Resolved]
  - Oxygen saturation decreased [Unknown]
